FAERS Safety Report 7704244-2 (Version None)
Quarter: 2011Q3

REPORT INFORMATION
  Report Type: 
  Country: None (occurrence: None)
  Receive Date: 20110823
  Receipt Date: 20110815
  Transmission Date: 20111222
  Serious: Yes (Hospitalization, Other)
  Sender: FDA-Public Use
  Company Number: US-JNJFOC-20110808769

PATIENT
  Sex: Female
  Weight: 68.04 kg

DRUGS (5)
  1. MORPHINE SULFATE [Concomitant]
     Indication: PAIN
     Route: 048
  2. LORATADINE [Concomitant]
     Indication: ASTHMA
     Route: 048
  3. ADVAIR DISKUS 100/50 [Concomitant]
     Indication: ASTHMA
     Dosage: 250/50 MG/ 1 PUFF DAILY
     Route: 055
  4. DURAGESIC-100 [Suspect]
     Indication: PAIN MANAGEMENT
     Route: 062
  5. PHENERGAN HCL [Concomitant]
     Indication: NAUSEA
     Dosage: 25 MG AS NEEDED
     Route: 048

REACTIONS (5)
  - MITRAL VALVE PROLAPSE [None]
  - BLOOD CHOLESTEROL INCREASED [None]
  - PULMONARY EMBOLISM [None]
  - MUSCLE SPASMS [None]
  - TYPE 2 DIABETES MELLITUS [None]
